FAERS Safety Report 8970385 (Version 1)
Quarter: 2012Q4

REPORT INFORMATION
  Report Type: 
  Country: US (occurrence: US)
  Receive Date: 20121218
  Receipt Date: 20121218
  Transmission Date: 20130627
  Serious: Yes (Hospitalization)
  Sender: FDA-Public Use
  Company Number: US-BRISTOL-MYERS SQUIBB COMPANY-17055633

PATIENT
  Sex: Female

DRUGS (1)
  1. ABILIFY [Suspect]
     Indication: MENTAL RETARDATION
     Dosage: Initially 5mg then 10mg and then again to 5mg

REACTIONS (3)
  - Parkinsonism [Recovering/Resolving]
  - Withdrawal syndrome [Recovering/Resolving]
  - Dyskinesia [Recovering/Resolving]
